FAERS Safety Report 16232028 (Version 1)
Quarter: 2019Q2

REPORT INFORMATION
  Report Type: Spontaneous
  Country: BR (occurrence: BR)
  Receive Date: 20190424
  Receipt Date: 20190424
  Transmission Date: 20190711
  Serious: Yes (Other)
  Sender: FDA-Public Use
  Company Number: BR-ACCORD-123114

PATIENT
  Age: 32 Year
  Sex: Female

DRUGS (2)
  1. CISPLATIN. [Suspect]
     Active Substance: CISPLATIN
     Indication: CERVIX CARCINOMA
     Dosage: 50MG/M2, EVERY 21 DAYS
  2. VINCRISTINE [Suspect]
     Active Substance: VINCRISTINE
     Indication: CERVIX CARCINOMA
     Dosage: 1MG/M2, EVERY 21 DAYS

REACTIONS (2)
  - Toxicity to various agents [Unknown]
  - Maternal exposure during pregnancy [Unknown]
